FAERS Safety Report 13417098 (Version 1)
Quarter: 2017Q2

REPORT INFORMATION
  Report Type: Spontaneous
  Country: IL (occurrence: IL)
  Receive Date: 20170407
  Receipt Date: 20170407
  Transmission Date: 20170830
  Serious: Yes (Hospitalization)
  Sender: FDA-Public Use
  Company Number: IL-SA-2017SA056167

PATIENT
  Age: 59 Year
  Sex: Female

DRUGS (3)
  1. GLIBENCLAMIDE [Suspect]
     Active Substance: GLYBURIDE
     Indication: TYPE 2 DIABETES MELLITUS
     Route: 065
  2. METFORMIN [Suspect]
     Active Substance: METFORMIN HYDROCHLORIDE
     Indication: TYPE 2 DIABETES MELLITUS
     Route: 065
  3. METFORMIN [Suspect]
     Active Substance: METFORMIN HYDROCHLORIDE
     Indication: TYPE 2 DIABETES MELLITUS
     Route: 065

REACTIONS (8)
  - Hypersensitivity vasculitis [Recovering/Resolving]
  - Arthralgia [Recovering/Resolving]
  - Lung infiltration [Recovering/Resolving]
  - Blister [Recovering/Resolving]
  - Purpura [Recovering/Resolving]
  - Joint swelling [Recovering/Resolving]
  - Pneumonitis [Recovering/Resolving]
  - Biopsy skin abnormal [Recovering/Resolving]
